FAERS Safety Report 6291843-0 (Version None)
Quarter: 2009Q3

REPORT INFORMATION
  Report Type: 
  Country: None (occurrence: None)
  Receive Date: 20090730
  Receipt Date: 20090722
  Transmission Date: 20100115
  Serious: Yes (Disabling)
  Sender: FDA-Public Use
  Company Number: CA-MERCK-0907CAN00117

PATIENT
  Age: 11 Year
  Sex: Female
  Weight: 36 kg

DRUGS (3)
  1. SINGULAIR [Suspect]
     Route: 048
  2. MOMETASONE FUROATE [Concomitant]
     Route: 065
  3. BUDESONIDE AND FORMOTEROL FUMARATE [Concomitant]
     Route: 065

REACTIONS (5)
  - AGGRESSION [None]
  - DEPRESSED MOOD [None]
  - MOOD SWINGS [None]
  - OBSESSIVE-COMPULSIVE DISORDER [None]
  - PERSONALITY CHANGE [None]
